FAERS Safety Report 8823403 (Version 2)
Quarter: 2012Q4

REPORT INFORMATION
  Report Type: Report from Study
  Country: US (occurrence: US)
  Receive Date: 20121003
  Receipt Date: 20121119
  Transmission Date: 20130627
  Serious: Yes (Hospitalization)
  Sender: FDA-Public Use
  Company Number: US-TEVA-362106USA

PATIENT
  Age: 56 Year
  Sex: Female
  Weight: 91.98 kg

DRUGS (17)
  1. DOXORUBICIN [Suspect]
     Indication: SARCOMA METASTATIC
     Route: 040
     Dates: start: 20120705
  2. TH-302 [Suspect]
     Indication: SARCOMA METASTATIC
     Route: 042
     Dates: start: 20120801
  3. ASPIRIN [Concomitant]
     Dates: start: 20120616
  4. BENADRYL [Concomitant]
     Dates: start: 2010
  5. SENNOSIDE A+B [Concomitant]
     Dates: start: 2010
  6. TYLENOL [Concomitant]
     Dates: start: 1992
  7. ALEVE [Concomitant]
     Dates: start: 20120705
  8. PROCHLORPERAZINE MALEATE [Concomitant]
     Dates: start: 20120705
  9. LORAZEPAM [Concomitant]
     Dates: start: 20120705
  10. LIDOCAINE W/PRILOCAINE [Concomitant]
     Dates: start: 20120705
  11. DEXAMETHASONE [Concomitant]
     Dates: start: 20120705
  12. FOSAPREPITANT [Concomitant]
     Dates: start: 20120705
  13. PALONOSETRON [Concomitant]
     Dates: start: 20120705
  14. ONDANSETRON [Concomitant]
     Dates: start: 20120711
  15. OXYGEN [Concomitant]
     Dates: start: 20120619
  16. PEGFILGRASTIM [Concomitant]
  17. AUGMENTIN [Concomitant]
     Dates: start: 20120803, end: 20120812

REACTIONS (2)
  - Pneumonia [Recovered/Resolved]
  - Anaemia [Recovered/Resolved]
